FAERS Safety Report 5827820-0 (Version None)
Quarter: 2008Q3

REPORT INFORMATION
  Report Type: 
  Country: None (occurrence: None)
  Receive Date: 20080728
  Receipt Date: 20080717
  Transmission Date: 20090109
  Serious: Yes (Other)
  Sender: FDA-Public Use
  Company Number: CHPA2008US06710

PATIENT
  Age: 7 Year
  Sex: Female
  Weight: 19 kg

DRUGS (1)
  1. TRIAMINIC-12 [Suspect]
     Indication: NASAL CONGESTION
     Dosage: 1 DF, TID, INHALATION
     Dates: start: 20080310, end: 20080313

REACTIONS (4)
  - APPLICATION SITE EXFOLIATION [None]
  - APPLICATION SITE IRRITATION [None]
  - APPLICATION SITE PAIN [None]
  - APPLICATION SITE SCAR [None]
